FAERS Safety Report 6144091-9 (Version None)
Quarter: 2009Q2

REPORT INFORMATION
  Report Type: 
  Country: None (occurrence: None)
  Receive Date: 20090406
  Receipt Date: 20090330
  Transmission Date: 20091009
  Serious: Yes (Hospitalization)
  Sender: FDA-Public Use
  Company Number: US-BIOGENIDEC-2009BI010055

PATIENT
  Age: 56 Year
  Sex: Female

DRUGS (11)
  1. TYSABRI [Suspect]
     Indication: MULTIPLE SCLEROSIS
     Route: 042
     Dates: start: 20080728
  2. SYMMETREL [Concomitant]
     Route: 048
  3. ADDERALL 10 [Concomitant]
     Route: 048
  4. CALCIUM CARBONATE [Concomitant]
     Route: 048
  5. ARICEPT [Concomitant]
     Route: 048
  6. NAMENDA [Concomitant]
     Route: 048
  7. METROGEL [Concomitant]
  8. REMERON [Concomitant]
     Route: 048
  9. PROTONIX [Concomitant]
     Route: 048
  10. ZOLOFT [Concomitant]
     Route: 048
  11. MULTI-VITAMINS [Concomitant]

REACTIONS (3)
  - COGNITIVE DISORDER [None]
  - DEPRESSION [None]
  - SYNCOPE [None]
